FAERS Safety Report 7592510-3 (Version None)
Quarter: 2011Q2

REPORT INFORMATION
  Report Type: 
  Country: None (occurrence: None)
  Receive Date: 20110628
  Receipt Date: 20110614
  Transmission Date: 20111010
  Serious: Yes (Other)
  Sender: FDA-Public Use
  Company Number: GGEL20110200018

PATIENT
  Age: 59 Year

DRUGS (2)
  1. MADOPAR (BENSERAZIDE HYDROCHLORIDE, LEVODOPA) (BENSERAZIDE HYDROCHLORI [Suspect]
     Dosage: ORAL
     Route: 048
     Dates: start: 20070101
  2. PRAMIPEXOLE DIHYDROCHLORIDE [Suspect]
     Indication: PARKINSON'S DISEASE
     Dosage: 4.5 MILLIGRAM, 3 IN 1 D, ORAL USE
     Route: 048
     Dates: start: 20060101

REACTIONS (3)
  - ECONOMIC PROBLEM [None]
  - PATHOLOGICAL GAMBLING [None]
  - CONDITION AGGRAVATED [None]
